FAERS Safety Report 8308857-9 (Version None)
Quarter: 2012Q2

REPORT INFORMATION
  Report Type: 
  Country: None (occurrence: None)
  Receive Date: 20120424
  Receipt Date: 20120420
  Transmission Date: 20120825
  Serious: Yes (Other)
  Sender: FDA-Public Use
  Company Number: US-PFIZER INC-2012022361

PATIENT
  Sex: Male

DRUGS (7)
  1. ACCUPRIL [Suspect]
     Indication: DIABETES MELLITUS
  2. MOTRIN [Concomitant]
     Dosage: 400 MG, 2X/DAY
  3. LIPITOR [Suspect]
     Indication: BLOOD CHOLESTEROL
     Dosage: 20 MG, DAILY
     Route: 048
  4. CARDURA [Suspect]
     Indication: BENIGN PROSTATIC HYPERPLASIA
     Dosage: 1 MG, 2X/DAY
     Route: 048
  5. ACCUPRIL [Suspect]
     Indication: HYPERTENSION
     Dosage: 40 MG, DAILY
     Route: 048
  6. METFORMIN [Concomitant]
     Dosage: 1000 MG, 2X/DAY
     Route: 048
  7. ASPIRIN [Concomitant]
     Dosage: 81 MG, UNK

REACTIONS (1)
  - DEAFNESS [None]
